FAERS Safety Report 5199828-2 (Version None)
Quarter: 2006Q4

REPORT INFORMATION
  Report Type: 
  Country: None (occurrence: None)
  Receive Date: 20061229
  Receipt Date: 20061211
  Transmission Date: 20070319
  Serious: Yes (Life-Threatening, Hospitalization)
  Sender: FDA-Public Use
  Company Number: 232783

PATIENT
  Sex: Female

DRUGS (5)
  1. HERCEPTIN [Suspect]
     Indication: BREAST CANCER
     Dosage: INTRAVENOUS
     Route: 042
     Dates: start: 20051215
  2. TAXOL [Suspect]
     Indication: BREAST CANCER
     Dosage: INTRAVENOUS
     Route: 042
     Dates: start: 20051215
  3. ANASTRAZOLE (ANASTRAZOLE) [Concomitant]
  4. CORTICOSTEROID (UNK INGREDIENTS) (CORTICOSTEROID NOS) [Concomitant]
  5. DEPAKENE [Concomitant]

REACTIONS (7)
  - ATRIAL THROMBOSIS [None]
  - BACTERIAL INFECTION [None]
  - INTRACARDIAC THROMBUS [None]
  - PERICARDIAL EFFUSION [None]
  - PULMONARY EMBOLISM [None]
  - SEPSIS [None]
  - SUPERINFECTION [None]
